FAERS Safety Report 9286193 (Version 22)
Quarter: 2015Q3

REPORT INFORMATION
  Report Type: Spontaneous
  Country: US (occurrence: US)
  Receive Date: 20130513
  Receipt Date: 20150715
  Transmission Date: 20151125
  Serious: Yes (Hospitalization, Other)
  Sender: FDA-Public Use
  Company Number: US-GLAXOSMITHKLINE-A0921310A

PATIENT
  Age: 68 Year
  Sex: Female
  Weight: 60.8 kg

DRUGS (25)
  1. FLOLAN [Suspect]
     Active Substance: EPOPROSTENOL SODIUM
     Dosage: UNK
     Dates: start: 20090807
  2. FLOLAN [Suspect]
     Active Substance: EPOPROSTENOL SODIUM
     Dosage: UNK
     Dates: start: 20090807
  3. FLOLAN [Suspect]
     Active Substance: EPOPROSTENOL SODIUM
     Dosage: UNK
     Dates: start: 20090807
  4. FLOLAN [Suspect]
     Active Substance: EPOPROSTENOL SODIUM
     Dosage: 34 NG/KG/MIN CONTINUOUS; CONCENTRATION: 45,000 NG/ML; PUMP RATE: 82 ML/DAY; VIAL STRENGTH: 1.5 MG
     Route: 042
     Dates: start: 20100527
  5. ALBUTEROL. [Concomitant]
     Active Substance: ALBUTEROL
  6. BOSENTAN [Concomitant]
     Active Substance: BOSENTAN
  7. PLAVIX [Concomitant]
     Active Substance: CLOPIDOGREL BISULFATE
  8. FLOLAN [Suspect]
     Active Substance: EPOPROSTENOL SODIUM
     Dosage: UNK
     Dates: start: 20090807
  9. FLOLAN [Suspect]
     Active Substance: EPOPROSTENOL SODIUM
     Dosage: 33.4 NG/KG/MIN
  10. SPIRONOLACTONE. [Concomitant]
     Active Substance: SPIRONOLACTONE
  11. FENOFIBRATE. [Concomitant]
     Active Substance: FENOFIBRATE
  12. TRACLEER [Concomitant]
     Active Substance: BOSENTAN
  13. COUMADIN [Concomitant]
     Active Substance: WARFARIN SODIUM
  14. FOLIC ACID. [Concomitant]
     Active Substance: FOLIC ACID
  15. FLOLAN [Suspect]
     Active Substance: EPOPROSTENOL SODIUM
     Dosage: UNK
     Dates: start: 20090807
  16. FLOLAN [Suspect]
     Active Substance: EPOPROSTENOL SODIUM
     Dosage: 34 NG/KG/MIN, CONTINUOUS
  17. LASIX [Concomitant]
     Active Substance: FUROSEMIDE
  18. FLUTICASONE [Concomitant]
     Active Substance: FLUTICASONE\FLUTICASONE PROPIONATE
  19. VITAMIN B [Concomitant]
     Active Substance: VITAMIN B
  20. SPIRIVA [Concomitant]
     Active Substance: TIOTROPIUM BROMIDE MONOHYDRATE
  21. SYNTHROID [Concomitant]
     Active Substance: LEVOTHYROXINE SODIUM
  22. FLOLAN [Suspect]
     Active Substance: EPOPROSTENOL SODIUM
     Indication: PULMONARY ARTERIAL HYPERTENSION
     Dosage: 32.4 NG/KG/MIN CONTINOUSLYCONCENTRATION 45000 NG/MLVIAL STRENGTH 1.5 MG33.4 NG/KG/MIN CONT CONC[...]
     Route: 042
     Dates: start: 20090807
  23. FLOLAN [Suspect]
     Active Substance: EPOPROSTENOL SODIUM
     Dosage: UNK
     Dates: start: 20090807
  24. CELEXA [Concomitant]
     Active Substance: CITALOPRAM HYDROBROMIDE
  25. PRAVACHOL [Concomitant]
     Active Substance: PRAVASTATIN SODIUM

REACTIONS (18)
  - Clostridium difficile infection [Unknown]
  - Staphylococcal sepsis [Unknown]
  - Myocardial infarction [Unknown]
  - Syncope [Unknown]
  - Transfusion [Unknown]
  - Hospitalisation [Unknown]
  - Implantable defibrillator insertion [Unknown]
  - Medical device complication [Unknown]
  - Emergency care examination [Unknown]
  - Mineral supplementation [Unknown]
  - Nausea [Unknown]
  - Fall [Unknown]
  - Diarrhoea [Unknown]
  - Dyspnoea [Unknown]
  - Cardiac operation [Unknown]
  - Catheter site infection [Unknown]
  - Vomiting [Unknown]
  - Head injury [Unknown]

NARRATIVE: CASE EVENT DATE: 20130527
